FAERS Safety Report 4712067-1 (Version None)
Quarter: 2005Q3

REPORT INFORMATION
  Report Type: 
  Country: None (occurrence: None)
  Receive Date: 20050712
  Receipt Date: 20050629
  Transmission Date: 20060218
  Serious: Yes (Hospitalization)
  Sender: FDA-Public Use
  Company Number: DE-JNJFOC-20050504944

PATIENT
  Sex: Male

DRUGS (1)
  1. HALDOL DECANOAT [Suspect]
     Indication: DRUG USE FOR UNKNOWN INDICATION
     Route: 030

REACTIONS (2)
  - DYSPHAGIA [None]
  - NO ADVERSE DRUG EFFECT [None]
